FAERS Safety Report 5502511-4 (Version None)
Quarter: 2007Q4

REPORT INFORMATION
  Report Type: 
  Country: None (occurrence: None)
  Receive Date: 20071030
  Receipt Date: 20071003
  Transmission Date: 20080405
  Serious: No
  Sender: FDA-Public Use
  Company Number: US-BOEHRINGER INGELHEIM PHARMACEUTICALS, INC.-2007-BP-21153BP

PATIENT
  Age: 48 Year
  Sex: Male
  Weight: 94.35 kg

DRUGS (8)
  1. FLOMAX [Suspect]
     Indication: BENIGN PROSTATIC HYPERPLASIA
     Dates: start: 20040901, end: 20070601
  2. DIOVAN [Suspect]
  3. LOTREL [Concomitant]
  4. XANAX [Concomitant]
  5. MOBIC [Concomitant]
  6. CRESTOR [Concomitant]
  7. TRIVORA-21 [Concomitant]
  8. CELEXA [Concomitant]

REACTIONS (2)
  - DRUG INTERACTION [None]
  - FATIGUE [None]
